FAERS Safety Report 10061758 (Version 2)
Quarter: 2014Q2

REPORT INFORMATION
  Report Type: Spontaneous
  Country: US (occurrence: US)
  Receive Date: 20140407
  Receipt Date: 20140502
  Transmission Date: 20141212
  Serious: Yes (Hospitalization)
  Sender: FDA-Public Use
  Company Number: US-BIOGENIDEC-2014BI031478

PATIENT
  Sex: Male

DRUGS (14)
  1. TYSABRI [Suspect]
     Indication: MULTIPLE SCLEROSIS
     Route: 042
     Dates: start: 20061107, end: 20090130
  2. AVONEX [Concomitant]
     Indication: MULTIPLE SCLEROSIS
     Route: 030
     Dates: start: 19990914, end: 20031214
  3. AVONEX [Concomitant]
     Indication: MULTIPLE SCLEROSIS
     Route: 030
  4. ZOCOR [Concomitant]
     Route: 048
  5. BACLOFEN [Concomitant]
     Route: 048
  6. DETROL [Concomitant]
     Route: 048
  7. OXYTROL [Concomitant]
  8. TRIAMTERENE/ HYDROCHLOROTHAIZIDE [Concomitant]
     Route: 048
  9. QUINAPRIL [Concomitant]
     Route: 048
  10. CITALOPRAM [Concomitant]
     Route: 048
  11. ASPIRIN [Concomitant]
     Route: 048
  12. ACTIPLUS [Concomitant]
     Route: 048
  13. GLIMEPIRIDE [Concomitant]
     Route: 048
  14. PROVIGIL [Concomitant]

REACTIONS (2)
  - Renal failure acute [Recovered/Resolved]
  - Multiple sclerosis [Unknown]
